FAERS Safety Report 20387683 (Version 1)
Quarter: 2022Q1

REPORT INFORMATION
  Report Type: Spontaneous
  Country: US (occurrence: US)
  Receive Date: 20220127
  Receipt Date: 20220127
  Transmission Date: 20220424
  Serious: No
  Sender: FDA-Public Use
  Company Number: US-ALLERGAN-2137291US

PATIENT
  Age: 48 Year
  Sex: Female

DRUGS (5)
  1. BOTOX COSMETIC [Suspect]
     Active Substance: ONABOTULINUMTOXINA
     Indication: Skin wrinkling
     Dosage: UNK UNK, SINGLE
     Dates: start: 20211101, end: 20211101
  2. BOTOX COSMETIC [Suspect]
     Active Substance: ONABOTULINUMTOXINA
     Indication: Skin wrinkling
     Dosage: UNK UNK, SINGLE
     Dates: start: 20211101, end: 20211101
  3. ELIQUIS [Concomitant]
     Active Substance: APIXABAN
  4. UNSPECIFIED INGREDIENT [Concomitant]
     Active Substance: UNSPECIFIED INGREDIENT
     Indication: Hypothyroidism
  5. Unspecified RLS medication [Concomitant]
     Indication: Restless legs syndrome

REACTIONS (8)
  - COVID-19 [Recovering/Resolving]
  - Influenza like illness [Recovering/Resolving]
  - Tinnitus [Recovering/Resolving]
  - Crying [Recovering/Resolving]
  - Depression [Recovering/Resolving]
  - Mental disorder [Recovering/Resolving]
  - Multiple use of single-use product [Unknown]
  - Headache [Recovering/Resolving]

NARRATIVE: CASE EVENT DATE: 20211101
